FAERS Safety Report 9786960 (Version 1)
Quarter: 2013Q4

REPORT INFORMATION
  Report Type: Report from Study
  Country: US (occurrence: US)
  Receive Date: 20131227
  Receipt Date: 20131227
  Transmission Date: 20140711
  Serious: Yes (Hospitalization)
  Sender: FDA-Public Use
  Company Number: US-ABBVIE-13P-163-1182804-00

PATIENT
  Age: 23 Year
  Sex: Male

DRUGS (7)
  1. HUMIRA [Suspect]
     Indication: CROHN^S DISEASE
     Dates: start: 201301, end: 201302
  2. HUMIRA [Suspect]
     Dates: start: 201302
  3. BUDESONIDE [Concomitant]
     Indication: CROHN^S DISEASE
  4. LORAZEPAM [Concomitant]
     Indication: ANXIETY
  5. PAROXETINE [Concomitant]
     Indication: ANXIETY
  6. ACETAMINOPHEN [Concomitant]
     Indication: PRODUCT USED FOR UNKNOWN INDICATION
     Dosage: AS NEEDED
  7. BENADRYL [Concomitant]
     Indication: RASH

REACTIONS (4)
  - Intestinal stenosis [Not Recovered/Not Resolved]
  - Stoma site irritation [Unknown]
  - Drug ineffective [Unknown]
  - Crohn^s disease [Unknown]
